FAERS Safety Report 4612289-4 (Version None)
Quarter: 2005Q1

REPORT INFORMATION
  Report Type: 
  Country: None (occurrence: None)
  Receive Date: 20050316
  Receipt Date: 20050304
  Transmission Date: 20050727
  Serious: Yes (Other)
  Sender: FDA-Public Use
  Company Number: HQWYE208029MAR04

PATIENT
  Age: 54 Year
  Sex: Female
  Weight: 64.47 kg

DRUGS (5)
  1. PREMARIN [Suspect]
     Indication: HORMONE REPLACEMENT THERAPY
     Dosage: ORAL
     Route: 048
     Dates: start: 19931001, end: 19961201
  2. PREMPRO [Suspect]
     Indication: HORMONE REPLACEMENT THERAPY
     Dosage: 0.625MG/2.5MG, ORAL
     Route: 048
     Dates: start: 19950101, end: 20020301
  3. PROVERA [Suspect]
     Indication: HORMONE REPLACEMENT THERAPY
     Dosage: ORAL
     Route: 048
     Dates: start: 19941001, end: 19961201
  4. LEVOXYL [Concomitant]
  5. ZESTRIL [Concomitant]

REACTIONS (14)
  - AORTIC VALVE DISEASE [None]
  - BLOOD BICARBONATE DECREASED [None]
  - BLOOD CHOLESTEROL INCREASED [None]
  - BLOOD TRIGLYCERIDES INCREASED [None]
  - CEREBRAL ARTERY OCCLUSION [None]
  - CEREBRAL INFARCTION [None]
  - CEREBROVASCULAR ACCIDENT [None]
  - HYPERCOAGULATION [None]
  - INTERNATIONAL NORMALISED RATIO INCREASED [None]
  - LABORATORY TEST ABNORMAL [None]
  - MITRAL VALVE DISEASE [None]
  - SICCA SYNDROME [None]
  - SYSTEMIC LUPUS ERYTHEMATOSUS [None]
  - TRANSIENT ISCHAEMIC ATTACK [None]
